FAERS Safety Report 25970844 (Version 5)
Quarter: 2025Q4

REPORT INFORMATION
  Report Type: Spontaneous
  Country: JP (occurrence: JP)
  Receive Date: 20251028
  Receipt Date: 20251211
  Transmission Date: 20260118
  Serious: Yes (Death, Life-Threatening)
  Sender: JAZZ
  Company Number: JP-JAZZ PHARMACEUTICALS-2025-JP-024602

PATIENT
  Age: 74 Year
  Sex: Male

DRUGS (7)
  1. VYXEOS [Suspect]
     Active Substance: CYTARABINE\DAUNORUBICIN
     Indication: Acute myeloid leukaemia
     Dosage: 100 UNITS PER SQUARE METER, DAILY
     Dates: start: 20250908, end: 20251001
  2. CYTARABINE [Suspect]
     Active Substance: CYTARABINE
     Indication: Acute myeloid leukaemia
  3. DAUNORUBICIN HYDROCHLORIDE [Concomitant]
     Active Substance: DAUNORUBICIN HYDROCHLORIDE
     Indication: Acute myeloid leukaemia
  4. AZACITIDINE [Concomitant]
     Active Substance: AZACITIDINE
     Indication: Acute myeloid leukaemia
  5. VENCLEXTA [Concomitant]
     Active Substance: VENETOCLAX
     Indication: Acute myeloid leukaemia
  6. ACLARUBICIN HYDROCHLORIDE [Concomitant]
     Active Substance: ACLARUBICIN HYDROCHLORIDE
     Indication: Acute myeloid leukaemia
  7. GRANULOCYTE COLONY-STIMULATING FACTOR NOS [Concomitant]
     Active Substance: GRANULOCYTE COLONY-STIMULATING FACTOR NOS
     Indication: Product used for unknown indication

REACTIONS (3)
  - Tumour lysis syndrome [Fatal]
  - Acute myeloid leukaemia [Fatal]
  - Infection [Not Recovered/Not Resolved]

NARRATIVE: CASE EVENT DATE: 20251001
